FAERS Safety Report 5629828-7 (Version None)
Quarter: 2008Q1

REPORT INFORMATION
  Report Type: 
  Country: None (occurrence: None)
  Receive Date: 20080218
  Receipt Date: 20080208
  Transmission Date: 20080703
  Serious: Yes (Other)
  Sender: FDA-Public Use
  Company Number: PHEH2008US01679

PATIENT
  Sex: Female

DRUGS (2)
  1. TRILEPTAL [Suspect]
     Dosage: 600 MG, TID
  2. KEPPRA [Suspect]

REACTIONS (4)
  - BALANCE DISORDER [None]
  - DIZZINESS [None]
  - NYSTAGMUS [None]
  - THYROID FUNCTION TEST ABNORMAL [None]
